FAERS Safety Report 24695274 (Version 1)
Quarter: 2024Q4

REPORT INFORMATION
  Report Type: Spontaneous
  Country: US (occurrence: None)
  Receive Date: 20241204
  Receipt Date: 20241204
  Transmission Date: 20250115
  Serious: Yes (Disabling)
  Sender: Public
  Company Number: None

PATIENT
  Age: 51 Year
  Sex: Male
  Weight: 87.75 kg

DRUGS (1)
  1. CITALOPRAM [Suspect]
     Active Substance: CITALOPRAM
     Indication: Anxiety
     Dosage: OTHER QUANTITY : 1 TABLET(S);?FREQUENCY : DAILY;?
     Route: 048
     Dates: start: 20231110, end: 20241015

REACTIONS (13)
  - Withdrawal syndrome [None]
  - Head discomfort [None]
  - Migraine [None]
  - Nausea [None]
  - Insomnia [None]
  - Balance disorder [None]
  - Fatigue [None]
  - Electric shock sensation [None]
  - Influenza like illness [None]
  - Impaired quality of life [None]
  - Dyspnoea [None]
  - Impaired work ability [None]
  - Mobility decreased [None]

NARRATIVE: CASE EVENT DATE: 20241015
